FAERS Safety Report 12798955 (Version 2)
Quarter: 2016Q4

REPORT INFORMATION
  Report Type: Spontaneous
  Country: KR (occurrence: KR)
  Receive Date: 20160930
  Receipt Date: 20161007
  Transmission Date: 20170207
  Serious: Yes (Other)
  Sender: FDA-Public Use
  Company Number: KR-PFIZER INC-2016446915

PATIENT
  Sex: Male

DRUGS (4)
  1. LIPITOR [Suspect]
     Active Substance: ATORVASTATIN CALCIUM
     Indication: PROPHYLAXIS
     Dosage: 10 MG, 1X/DAY (30 MINUTES AFTER BREAKFAST)
     Route: 048
     Dates: start: 201506, end: 201511
  2. DILATREND SR [Concomitant]
     Indication: PROPHYLAXIS
     Dosage: 64 MG, 1X/DAY
     Route: 048
     Dates: start: 201506, end: 201511
  3. ASPIRIN PROTECT [Concomitant]
     Active Substance: ASPIRIN
     Indication: PROPHYLAXIS
     Dosage: 100 MG, 1X/DAY (30 MINUTES AFTER BREAKFAST FOR 185 DAYS)
     Route: 048
     Dates: start: 201506, end: 201511
  4. COZAAR [Concomitant]
     Active Substance: LOSARTAN POTASSIUM
     Indication: PROPHYLAXIS
     Dosage: 50 MG, 1X/DAY (30 MINUTES AFTER BREAKFAST FOR 185 DAYS)
     Route: 048
     Dates: start: 201506, end: 201511

REACTIONS (18)
  - Fall [Recovered/Resolved]
  - Pain [Recovered/Resolved]
  - Hypophagia [Recovered/Resolved]
  - Dyspnoea [Recovered/Resolved]
  - Swelling face [Recovered/Resolved]
  - Flatulence [Recovered/Resolved]
  - Somnolence [Recovered/Resolved]
  - Oesophageal food impaction [Recovered/Resolved]
  - Lordosis [Recovered/Resolved]
  - Asthenia [Not Recovered/Not Resolved]
  - Cough [Recovered/Resolved]
  - Abdominal pain upper [Recovered/Resolved]
  - Loss of consciousness [Recovered/Resolved]
  - Gait disturbance [Recovered/Resolved]
  - Weight decreased [Unknown]
  - Back injury [Not Recovered/Not Resolved]
  - Benign prostatic hyperplasia [Not Recovered/Not Resolved]
  - Poverty of speech [Recovered/Resolved]

NARRATIVE: CASE EVENT DATE: 2015
